FAERS Safety Report 6892353-X (Version None)
Quarter: 2010Q3

REPORT INFORMATION
  Report Type: 
  Country: None (occurrence: None)
  Receive Date: 20100731
  Receipt Date: 20080418
  Transmission Date: 20110219
  Serious: No
  Sender: FDA-Public Use
  Company Number: US-PFIZER INC-2008035200

PATIENT
  Sex: Male
  Weight: 102 kg

DRUGS (2)
  1. AMLODIPINE [Suspect]
     Dates: start: 20080301
  2. NORVASC [Concomitant]
     Indication: HYPERTENSION

REACTIONS (2)
  - FLUSHING [None]
  - HEADACHE [None]
